FAERS Safety Report 20116271 (Version 1)
Quarter: 2021Q4

REPORT INFORMATION
  Report Type: Spontaneous
  Country: JP (occurrence: JP)
  Receive Date: 20211126
  Receipt Date: 20211126
  Transmission Date: 20220303
  Serious: Yes (Other)
  Sender: FDA-Public Use
  Company Number: JP-ASTELLAS-2021JP022615

PATIENT
  Sex: Male

DRUGS (2)
  1. XTANDI [Suspect]
     Active Substance: ENZALUTAMIDE
     Indication: Prostate cancer
     Route: 048
  2. LEUPLIN [Suspect]
     Active Substance: LEUPROLIDE ACETATE
     Indication: Product used for unknown indication
     Dosage: UNK UNK, ONCE EVERY 6 MONTHS
     Route: 065

REACTIONS (9)
  - Laryngeal haemorrhage [Recovered/Resolved]
  - Testicular atrophy [Unknown]
  - Testicular pain [Unknown]
  - Testis discomfort [Unknown]
  - Haemorrhoidal haemorrhage [Recovered/Resolved]
  - Periodontal inflammation [Unknown]
  - Breast enlargement [Unknown]
  - Feeling abnormal [Unknown]
  - Diarrhoea [Unknown]
